FAERS Safety Report 4437958-0 (Version None)
Quarter: 2004Q3

REPORT INFORMATION
  Report Type: 
  Country: None (occurrence: None)
  Receive Date: 20040831
  Receipt Date: 20040810
  Transmission Date: 20050211
  Serious: Yes (Hospitalization, Disabling)
  Sender: FDA-Public Use
  Company Number: FR-GLAXOSMITHKLINE-B0342078A

PATIENT
  Age: 60 Year
  Sex: Male

DRUGS (13)
  1. AUGMENTIN '125' [Suspect]
     Dosage: 1G THREE TIMES PER DAY
     Route: 048
     Dates: start: 20040401, end: 20040408
  2. VALGANCICLOVIR HYDROCHLORIDE [Suspect]
     Route: 048
     Dates: start: 20030930, end: 20040414
  3. OMEPRAZOLE [Concomitant]
     Route: 048
  4. TAZOCILLINE [Concomitant]
     Dosage: 4G THREE TIMES PER DAY
     Route: 042
     Dates: start: 20040301
  5. AMIKACIN [Concomitant]
     Dosage: 1G PER DAY
     Dates: start: 20040301
  6. TIENAM [Concomitant]
     Route: 042
     Dates: start: 20040301
  7. VANCOMYCIN [Concomitant]
     Route: 042
     Dates: start: 20040301
  8. ROCEPHIN [Concomitant]
     Dates: start: 20030901
  9. BACTRIM [Concomitant]
     Route: 042
     Dates: start: 20030916
  10. CYMEVAN [Concomitant]
     Dosage: 5MGK TWICE PER DAY
     Route: 042
     Dates: start: 20030901
  11. TEGELINE [Concomitant]
     Dosage: 35G PER DAY
     Route: 042
     Dates: start: 20030901
  12. FRAXODI [Concomitant]
     Dosage: .6ML PER DAY
     Route: 058
     Dates: start: 20030901
  13. ANTICOAGULANTS (UNSPECIFIED) [Concomitant]
     Dates: start: 20030901

REACTIONS (1)
  - MACULAR OEDEMA [None]
